FAERS Safety Report 23463747 (Version 1)
Quarter: 2024Q1

REPORT INFORMATION
  Report Type: Other
  Country: CN (occurrence: None)
  Receive Date: 20240201
  Receipt Date: 20240201
  Transmission Date: 20240410
  Serious: Yes (Other)
  Sender: FDA-Public Use
  Company Number: CN-Square-000202

PATIENT
  Age: 68 Year
  Sex: Female

DRUGS (2)
  1. CALCIUM ACETATE [Suspect]
     Active Substance: CALCIUM ACETATE
     Indication: Osteoporosis
  2. VITAMIN D [Suspect]
     Active Substance: VITAMIN D NOS
     Indication: Osteoporosis

REACTIONS (1)
  - Mesenteric phlebosclerosis [Recovering/Resolving]
